FAERS Safety Report 4973286-2 (Version None)
Quarter: 2006Q2

REPORT INFORMATION
  Report Type: 
  Country: None (occurrence: None)
  Receive Date: 20060414
  Receipt Date: 20041222
  Transmission Date: 20061013
  Serious: Yes (Hospitalization, Disabling)
  Sender: FDA-Public Use
  Company Number: US-MERCK-0412USA02833

PATIENT
  Sex: Male

DRUGS (1)
  1. VIOXX [Suspect]
     Route: 048
     Dates: start: 20000101, end: 20040101

REACTIONS (10)
  - ADVERSE EVENT [None]
  - ANXIETY [None]
  - CARDIAC DISORDER [None]
  - HEAD INJURY [None]
  - INJURY [None]
  - INTERNAL INJURY [None]
  - MYOCARDIAL INFARCTION [None]
  - NERVOUS SYSTEM DISORDER [None]
  - NEUROGENIC SHOCK [None]
  - PAIN [None]
